FAERS Safety Report 5596783-8 (Version None)
Quarter: 2008Q1

REPORT INFORMATION
  Report Type: 
  Country: None (occurrence: None)
  Receive Date: 20080118
  Receipt Date: 20080110
  Transmission Date: 20080703
  Serious: Yes (Other)
  Sender: FDA-Public Use
  Company Number: AU-PFIZER INC-2008003439

PATIENT

DRUGS (1)
  1. SUTENT [Suspect]

REACTIONS (8)
  - ALOPECIA [None]
  - DEPRESSION [None]
  - DRUG TOXICITY [None]
  - LIVER FUNCTION TEST ABNORMAL [None]
  - MUCOSAL INFLAMMATION [None]
  - SKIN LESION [None]
  - THROMBOCYTOPENIA [None]
  - ULCER [None]
